FAERS Safety Report 5681279-5 (Version None)
Quarter: 2008Q1

REPORT INFORMATION
  Report Type: 
  Country: None (occurrence: None)
  Receive Date: 20080326
  Receipt Date: 20070215
  Transmission Date: 20080703
  Serious: Yes (Other)
  Sender: FDA-Public Use
  Company Number: US-BAYER-US-2007-001110

PATIENT
  Age: 18 Year
  Sex: Female
  Weight: 75 kg

DRUGS (2)
  1. MIRENA [Suspect]
     Indication: CONTRACEPTION
     Route: 015
     Dates: start: 20070103, end: 20070103
  2. MIRENA [Suspect]
     Route: 015
     Dates: start: 20070103, end: 20070103

REACTIONS (1)
  - IUD MIGRATION [None]
